FAERS Safety Report 22204009 (Version 3)
Quarter: 2023Q2

REPORT INFORMATION
  Report Type: Report from Study
  Country: CA (occurrence: CA)
  Receive Date: 20230412
  Receipt Date: 20230502
  Transmission Date: 20230721
  Serious: Yes (Other)
  Sender: FDA-Public Use
  Company Number: CA-GILEAD-2023-0615469

PATIENT
  Age: 47 Year
  Sex: Female

DRUGS (14)
  1. SACITUZUMAB GOVITECAN-HZIY [Suspect]
     Active Substance: SACITUZUMAB GOVITECAN-HZIY
     Indication: Triple negative breast cancer
     Dosage: 753 MG
     Route: 042
     Dates: start: 20230127
  2. TAXOL [Concomitant]
     Active Substance: PACLITAXEL
  3. CARBOPLATIN\GEMCITABINE [Concomitant]
     Active Substance: CARBOPLATIN\GEMCITABINE
  4. KEYTRUDA [Concomitant]
     Active Substance: PEMBROLIZUMAB
  5. ACETAMINOPHEN [Concomitant]
     Active Substance: ACETAMINOPHEN
     Dosage: 650 MG PO (PRE-MEDICATION PRIOR TO TRODELVY)
  6. ACETAMINOPHEN [Concomitant]
     Active Substance: ACETAMINOPHEN
     Dosage: 650 MG PO (PRE-MEDICATION PRIOR TO TRODELVY)
  7. ONDANSETRON [Concomitant]
     Active Substance: ONDANSETRON
     Dosage: 16 MG PO (PRE-MEDICATION PRIOR TO TRODELVY)
  8. ONDANSETRON [Concomitant]
     Active Substance: ONDANSETRON
     Dosage: 16 MG PO (PRE-MEDICATION PRIOR TO TRODELVY)
  9. DEXAMETHASONE [Concomitant]
     Active Substance: DEXAMETHASONE
     Dosage: DECADRON 10 MG PIV (PRE-MEDICATION PRIOR TO TRODELVY)
  10. DEXAMETHASONE [Concomitant]
     Active Substance: DEXAMETHASONE
     Dosage: 10 MG PIV (PRE-MEDICATION PRIOR TO TRODELVY)
  11. FAMOTIDINE [Concomitant]
     Active Substance: FAMOTIDINE
     Dosage: 20 MG PIV (PRE-MEDICATION PRIOR TO TRODELVY)
  12. FAMOTIDINE [Concomitant]
     Active Substance: FAMOTIDINE
     Dosage: 20 MG PIV (PRE-MEDICATION PRIOR TO TRODELVY)
  13. DIPHENHYDRAMINE [Concomitant]
     Active Substance: DIPHENHYDRAMINE
     Dosage: 50 MG PIV PO (PRE-MEDICATION PRIOR TO TRODELVY)
  14. DIPHENHYDRAMINE [Concomitant]
     Active Substance: DIPHENHYDRAMINE
     Dosage: 50 MG PIV PO (PRE-MEDICATION PRIOR TO TRODELVY)

REACTIONS (17)
  - Complication associated with device [Unknown]
  - Discomfort [Not Recovered/Not Resolved]
  - Constipation [Not Recovered/Not Resolved]
  - Back pain [Not Recovered/Not Resolved]
  - Coccydynia [Recovering/Resolving]
  - Stress [Unknown]
  - Hypertension [Unknown]
  - Heart rate increased [Not Recovered/Not Resolved]
  - Flushing [Recovered/Resolved]
  - Weight fluctuation [Not Recovered/Not Resolved]
  - Hypertension [Not Recovered/Not Resolved]
  - Inappropriate schedule of product administration [Unknown]
  - Neutrophil count abnormal [Not Recovered/Not Resolved]
  - Weight decreased [Unknown]
  - Catheter site swelling [Not Recovered/Not Resolved]
  - Diarrhoea [Unknown]
  - Drug ineffective [Not Recovered/Not Resolved]

NARRATIVE: CASE EVENT DATE: 20230127
